FAERS Safety Report 5592325-1 (Version None)
Quarter: 2008Q1

REPORT INFORMATION
  Report Type: 
  Country: None (occurrence: None)
  Receive Date: 20080111
  Receipt Date: 20080103
  Transmission Date: 20080703
  Serious: Yes (Hospitalization)
  Sender: FDA-Public Use
  Company Number: B0500647A

PATIENT
  Age: 47 Year
  Sex: Female

DRUGS (1)
  1. ACETAMINOPHEN [Suspect]
     Indication: FACIAL PAIN
     Dosage: 1 TABLET / SINGLE DOSE/ ORAL
     Route: 048
     Dates: end: 20071003

REACTIONS (6)
  - ANAPHYLACTIC REACTION [None]
  - DRY THROAT [None]
  - HYPOAESTHESIA ORAL [None]
  - HYPOTENSION [None]
  - NONSPECIFIC REACTION [None]
  - PAIN [None]
